FAERS Safety Report 11535557 (Version 2)
Quarter: 2015Q4

REPORT INFORMATION
  Report Type: Spontaneous
  Country: US (occurrence: US)
  Receive Date: 20150922
  Receipt Date: 20151005
  Transmission Date: 20160304
  Serious: Yes (Hospitalization)
  Sender: FDA-Public Use
  Company Number: US-BIOGENIDEC-2015BI122872

PATIENT
  Age: 57 Year
  Sex: Female
  Weight: 57 kg

DRUGS (16)
  1. DULOXETINE. [Concomitant]
     Active Substance: DULOXETINE
     Dates: start: 2011
  2. CENTRUM [Concomitant]
     Active Substance: VITAMINS
  3. TECFIDERA [Suspect]
     Active Substance: DIMETHYL FUMARATE
     Indication: MULTIPLE SCLEROSIS
     Route: 048
     Dates: start: 2014
  4. MACRODANTIN [Concomitant]
     Active Substance: NITROFURANTOIN
     Dates: start: 1995
  5. VITAMIN D3 [Concomitant]
     Active Substance: CHOLECALCIFEROL
  6. VITAMIN C [Concomitant]
     Active Substance: ASCORBIC ACID
  7. TRIMETHOPRIM. [Concomitant]
     Active Substance: TRIMETHOPRIM
     Dates: start: 1995
  8. IBUPROFEN. [Concomitant]
     Active Substance: IBUPROFEN
  9. DECADRON [Concomitant]
     Active Substance: DEXAMETHASONE
     Dates: start: 2005
  10. KLONOPIN [Concomitant]
     Active Substance: CLONAZEPAM
     Dates: start: 1985
  11. COLACE [Concomitant]
     Active Substance: DOCUSATE SODIUM
  12. LIBRAX [Concomitant]
     Active Substance: CHLORDIAZEPOXIDE HYDROCHLORIDE\CLIDINIUM BROMIDE
  13. LEVOTHYROXINE. [Concomitant]
     Active Substance: LEVOTHYROXINE
  14. TEGRETOL [Concomitant]
     Active Substance: CARBAMAZEPINE
     Dates: start: 2011
  15. BACLOFEN. [Concomitant]
     Active Substance: BACLOFEN
     Dates: start: 1985
  16. TRAZODONE [Concomitant]
     Active Substance: TRAZODONE HYDROCHLORIDE
     Dates: start: 2010

REACTIONS (1)
  - Bladder cancer [Unknown]
